FAERS Safety Report 6268091-3 (Version None)
Quarter: 2009Q3

REPORT INFORMATION
  Report Type: 
  Country: None (occurrence: None)
  Receive Date: 20090715
  Receipt Date: 20070320
  Transmission Date: 20100115
  Serious: Yes (Hospitalization)
  Sender: FDA-Public Use
  Company Number: US-ASTRAZENECA-2006UW07008

PATIENT
  Age: 35 Year
  Sex: Male
  Weight: 95.3 kg

DRUGS (23)
  1. SEROQUEL [Suspect]
     Indication: PSYCHOTIC DISORDER
     Route: 048
     Dates: start: 20021001, end: 20051101
  2. SEROQUEL [Suspect]
     Indication: SCHIZOPHRENIA
     Route: 048
     Dates: start: 20021001, end: 20051101
  3. SEROQUEL [Suspect]
     Dosage: 200 TO 2000 MG AT NIGHT
     Route: 048
     Dates: start: 20021025
  4. SEROQUEL [Suspect]
     Dosage: 200 TO 2000 MG AT NIGHT
     Route: 048
     Dates: start: 20021025
  5. THORAZINE [Concomitant]
     Dates: end: 20050101
  6. ZYPREXA [Concomitant]
     Dates: start: 20020901, end: 20021001
  7. MOBAN [Concomitant]
     Dates: start: 20060201
  8. DEPAKOTE [Concomitant]
     Route: 048
     Dates: start: 20021002
  9. PAXIL CR [Concomitant]
     Indication: DEPRESSION
     Dosage: 20 TO 50 MG DAILY
     Route: 048
     Dates: start: 20021002
  10. LITHIUM [Concomitant]
     Dosage: 300 TO 900 MG AT NIGHT
     Route: 048
     Dates: start: 20030120, end: 20040701
  11. ATENOLOL [Concomitant]
     Indication: TREMOR
     Route: 048
     Dates: start: 20030423
  12. GEODON [Concomitant]
     Dates: start: 20030101, end: 20060101
  13. GEODON [Concomitant]
     Route: 048
     Dates: start: 20030828
  14. ZOLOFT [Concomitant]
     Route: 048
     Dates: start: 20050517
  15. DIAZEPAM [Concomitant]
     Route: 048
     Dates: start: 20051220
  16. FLUPHENAZINE [Concomitant]
     Route: 048
     Dates: start: 20051220
  17. BENZTROPINE [Concomitant]
     Route: 048
     Dates: start: 20051220
  18. LORAZEPAM [Concomitant]
     Indication: AGITATION
     Dosage: 1 TO 2 MG DAILY
     Route: 048
     Dates: start: 20051220
  19. TRAZODONE [Concomitant]
     Dosage: 100 TO 200 MG AT NIGHT
     Route: 048
     Dates: start: 20030804
  20. ABILIFY [Concomitant]
     Dates: start: 20030101
  21. ABILIFY [Concomitant]
     Route: 048
     Dates: start: 20030407
  22. RISPERDAL [Concomitant]
     Dates: start: 20030701, end: 20030801
  23. RISPERDAL [Concomitant]
     Dosage: 1 TO 2 MG DAILY
     Route: 048
     Dates: start: 20030729

REACTIONS (7)
  - BLOOD CHOLESTEROL INCREASED [None]
  - BLOOD TRIGLYCERIDES INCREASED [None]
  - DRUG TOXICITY [None]
  - MULTIPLE INJURIES [None]
  - THERAPEUTIC AGENT TOXICITY [None]
  - TYPE 2 DIABETES MELLITUS [None]
  - WEIGHT INCREASED [None]
